FAERS Safety Report 5009174-5 (Version None)
Quarter: 2006Q2

REPORT INFORMATION
  Report Type: 
  Country: None (occurrence: None)
  Receive Date: 20060519
  Receipt Date: 20060509
  Transmission Date: 20061013
  Serious: Yes (Death, Other)
  Sender: FDA-Public Use
  Company Number: 2006AL001169

PATIENT
  Age: 76 Year
  Sex: Male
  Weight: 77 kg

DRUGS (2)
  1. MIRTAZAPINE [Suspect]
     Indication: DEPRESSION
     Dosage: PO
  2. SERTRALINE [Suspect]
     Indication: DEPRESSION
     Dosage: PO
     Route: 048

REACTIONS (13)
  - ARTERIOSCLEROSIS CORONARY ARTERY [None]
  - CARDIAC HYPERTROPHY [None]
  - COMPLETED SUICIDE [None]
  - DRUG TOXICITY [None]
  - HYPONATRAEMIA [None]
  - MULTIPLE DRUG OVERDOSE INTENTIONAL [None]
  - ORTHOSTATIC HYPOTENSION [None]
  - PULMONARY CONGESTION [None]
  - PULMONARY OEDEMA [None]
  - RENAL DISORDER [None]
  - SEDATION [None]
  - TACHYCARDIA [None]
  - VASODILATATION [None]
